FAERS Safety Report 8189577-0 (Version None)
Quarter: 2012Q1

REPORT INFORMATION
  Report Type: 
  Country: None (occurrence: None)
  Receive Date: 20120307
  Receipt Date: 20120301
  Transmission Date: 20120608
  Serious: Yes (Death, Hospitalization)
  Sender: FDA-Public Use
  Company Number: US-CELGENEUS-163-20785-11050250

PATIENT
  Age: 88 Year
  Sex: Male
  Weight: 68 kg

DRUGS (9)
  1. PREDNISONE TAB [Suspect]
     Indication: MULTIPLE MYELOMA
     Dosage: 100 MILLIGRAM
     Route: 048
     Dates: start: 20110325
  2. PREDNISONE TAB [Suspect]
     Dosage: 100 MILLIGRAM
     Route: 048
     Dates: start: 20110427, end: 20110429
  3. ASPIRIN [Concomitant]
     Dosage: 325 MILLIGRAM
     Route: 048
     Dates: start: 20110325
  4. MELPHALAN HYDROCHLORIDE [Suspect]
     Dosage: 9 MILLIGRAM/SQ. METER
     Route: 048
     Dates: start: 20110527, end: 20110530
  5. THALOMID [Suspect]
     Indication: MULTIPLE MYELOMA
     Dosage: 100 MILLIGRAM
     Route: 048
     Dates: start: 20110325, end: 20110421
  6. THALOMID [Suspect]
     Dosage: 100 MILLIGRAM
     Route: 048
     Dates: start: 20110527, end: 20110607
  7. MELPHALAN HYDROCHLORIDE [Suspect]
     Indication: MULTIPLE MYELOMA
     Dosage: 9 MILLIGRAM/SQ. METER
     Route: 048
     Dates: start: 20110325
  8. MELPHALAN HYDROCHLORIDE [Suspect]
     Dosage: 9 MILLIGRAM/SQ. METER
     Route: 048
     Dates: start: 20110427, end: 20110429
  9. PREDNISONE TAB [Suspect]
     Dosage: 100 MILLIGRAM
     Route: 048
     Dates: start: 20110527, end: 20110530

REACTIONS (3)
  - COGNITIVE DISORDER [None]
  - MULTIPLE MYELOMA [None]
  - MENINGITIS [None]
